FAERS Safety Report 13612773 (Version 2)
Quarter: 2018Q1

REPORT INFORMATION
  Report Type: Spontaneous
  Country: US (occurrence: US)
  Receive Date: 20170605
  Receipt Date: 20180105
  Transmission Date: 20180508
  Serious: No
  Sender: FDA-Public Use
  Company Number: US-ALLERGAN-1713092US

PATIENT
  Age: 40 Year
  Sex: Female

DRUGS (2)
  1. KYBELLA [Suspect]
     Active Substance: DEOXYCHOLIC ACID
     Indication: FAT TISSUE INCREASED
     Dosage: 1 DF, SINGLE
     Route: 058
     Dates: start: 20170310, end: 20170310
  2. RETIN-A [Concomitant]
     Active Substance: TRETINOIN
     Indication: PRODUCT USED FOR UNKNOWN INDICATION
     Dosage: UNK
     Route: 061

REACTIONS (5)
  - Cellulitis [Unknown]
  - Injection site swelling [Unknown]
  - Administration site induration [Unknown]
  - Skin irritation [Unknown]
  - Injection site pain [Unknown]
